FAERS Safety Report 7383141-9 (Version None)
Quarter: 2011Q1

REPORT INFORMATION
  Report Type: 
  Country: None (occurrence: None)
  Receive Date: 20110325
  Receipt Date: 20110325
  Transmission Date: 20110831
  Serious: Yes (Other)
  Sender: FDA-Public Use
  Company Number: None

PATIENT
  Sex: Male
  Weight: 68.9467 kg

DRUGS (2)
  1. VENLAFAXINE [Suspect]
     Indication: ANXIETY
  2. EFFEXOR XR [Suspect]
     Indication: DEPRESSION
     Dosage: EFFEXOR XR 150MG QHS PO; EFFEXOR XR 225 MG  QHS PO
     Route: 048

REACTIONS (8)
  - PRODUCT SUBSTITUTION ISSUE [None]
  - AKATHISIA [None]
  - DEPRESSIVE SYMPTOM [None]
  - SUICIDAL IDEATION [None]
  - DRUG WITHDRAWAL SYNDROME [None]
  - NAUSEA [None]
  - VOMITING [None]
  - ANXIETY [None]
